FAERS Safety Report 5588958-9 (Version None)
Quarter: 2007Q4

REPORT INFORMATION
  Report Type: 
  Country: None (occurrence: None)
  Receive Date: 20071211
  Receipt Date: 20071107
  Transmission Date: 20080405
  Serious: No
  Sender: FDA-Public Use
  Company Number: 002#2#2007-00317

PATIENT
  Age: 70 Year
  Sex: Male

DRUGS (1)
  1. NEUPRO [Suspect]
     Indication: PARKINSON'S DISEASE
     Dosage: MG/24H,1 IN 1 D,TRANSDERMAL
     Route: 062
     Dates: start: 20070101, end: 20071001

REACTIONS (3)
  - CONFUSIONAL STATE [None]
  - DEREALISATION [None]
  - HALLUCINATION [None]
